FAERS Safety Report 17364262 (Version 1)
Quarter: 2020Q1

REPORT INFORMATION
  Report Type: Report from Study
  Country: None (occurrence: SI)
  Receive Date: 20200204
  Receipt Date: 20200204
  Transmission Date: 20200409
  Serious: Yes (Disabling)
  Sender: FDA-Public Use
  Company Number: SI-ABBVIE-20K-261-3258435-00

PATIENT
  Age: 52 Year
  Sex: Female
  Weight: 80 kg

DRUGS (2)
  1. DUODOPA [Suspect]
     Active Substance: CARBIDOPA\LEVODOPA
     Indication: PARKINSON^S DISEASE
     Route: 050
     Dates: start: 201711
  2. LEKADOL [Concomitant]
     Active Substance: ACETAMINOPHEN
     Indication: ANALGESIC THERAPY
     Dosage: AS NEEDED
     Route: 048
     Dates: start: 2019

REACTIONS (2)
  - Fall [Unknown]
  - Pelvic fracture [Recovering/Resolving]

NARRATIVE: CASE EVENT DATE: 20191125
